APPROVED DRUG PRODUCT: DANTROLENE SODIUM
Active Ingredient: DANTROLENE SODIUM
Strength: 100MG
Dosage Form/Route: CAPSULE;ORAL
Application: A076856 | Product #003 | TE Code: AB
Applicant: IMPAX LABORATORIES INC
Approved: Mar 1, 2005 | RLD: No | RS: No | Type: RX